FAERS Safety Report 23609307 (Version 2)
Quarter: 2024Q1

REPORT INFORMATION
  Report Type: Spontaneous
  Country: US (occurrence: US)
  Receive Date: 20240308
  Receipt Date: 20240314
  Transmission Date: 20240409
  Serious: Yes (Life-Threatening, Hospitalization, Other)
  Sender: FDA-Public Use
  Company Number: US-GLENMARK PHARMACEUTICALS-2024GMK089209

PATIENT

DRUGS (13)
  1. LIDOCAINE [Suspect]
     Active Substance: LIDOCAINE
     Indication: Anaesthetic premedication
     Dosage: 20 MILLILITER
     Route: 058
  2. LIDOCAINE [Suspect]
     Active Substance: LIDOCAINE
     Dosage: 70 MILLILITER, (TOTAL)
     Route: 058
  3. FENTANYL [Concomitant]
     Active Substance: FENTANYL\FENTANYL CITRATE
     Indication: Anaesthetic premedication
     Dosage: 50 MICROGRAM
     Route: 042
  4. MIDAZOLAM [Concomitant]
     Active Substance: MIDAZOLAM
     Indication: Anaesthetic premedication
     Dosage: 2 MILLIGRAM
     Route: 042
  5. METOPROLOL [Concomitant]
     Active Substance: METOPROLOL
     Indication: Hypertension
     Dosage: 50 MILLIGRAM, PRN (AS NECESSARY)
     Route: 065
  6. BUPROPION [Concomitant]
     Active Substance: BUPROPION
     Indication: Product used for unknown indication
     Dosage: 150 MILLIGRAM, QD (EXTENDED RELEASE (ER)
     Route: 065
  7. RIZATRIPTAN BENZOATE [Concomitant]
     Active Substance: RIZATRIPTAN BENZOATE
     Indication: Headache
     Dosage: 10 MILLIGRAM, PRN (AS NECESSARY)
     Route: 065
  8. GABAPENTIN [Concomitant]
     Active Substance: GABAPENTIN
     Indication: Neuralgia
     Dosage: 300 MILLIGRAM, PRN (AS NECESSARY)
     Route: 065
  9. CHOLECALCIFEROL [Concomitant]
     Active Substance: CHOLECALCIFEROL
     Indication: Product used for unknown indication
     Dosage: 50 MICROGRAM, QD
     Route: 065
  10. FAMOTIDINE [Concomitant]
     Active Substance: FAMOTIDINE
     Indication: Gastrooesophageal reflux disease
     Dosage: 40 MILLIGRAM, BID
     Route: 065
  11. DIVALPROEX SODIUM [Concomitant]
     Active Substance: DIVALPROEX SODIUM
     Indication: Anxiety
     Dosage: 750 MILLIGRAM, QD
     Route: 065
  12. DIVALPROEX SODIUM [Concomitant]
     Active Substance: DIVALPROEX SODIUM
     Indication: Craniocerebral injury
  13. DIVALPROEX SODIUM [Concomitant]
     Active Substance: DIVALPROEX SODIUM
     Indication: Migraine

REACTIONS (9)
  - Local anaesthetic systemic toxicity [Recovered/Resolved]
  - Overdose [Unknown]
  - Transient ischaemic attack [Unknown]
  - Sinus tachycardia [Unknown]
  - Hypertension [Recovering/Resolving]
  - Drug level above therapeutic [Unknown]
  - Dysarthria [Unknown]
  - Tremor [Unknown]
  - Hypersensitivity [Unknown]
